FAERS Safety Report 7588994-7 (Version None)
Quarter: 2011Q3

REPORT INFORMATION
  Report Type: 
  Country: None (occurrence: None)
  Receive Date: 20110705
  Receipt Date: 20110628
  Transmission Date: 20111222
  Serious: Yes (Hospitalization, Other)
  Sender: FDA-Public Use
  Company Number: US-AMGEN-USASP2011030587

PATIENT
  Age: 35 Year
  Sex: Female

DRUGS (1)
  1. ENBREL [Suspect]
     Indication: RHEUMATOID ARTHRITIS
     Dosage: 50 MG, QWK
     Dates: start: 20020101

REACTIONS (7)
  - AMNIOTIC FLUID VOLUME DECREASED [None]
  - INJECTION SITE PRURITUS [None]
  - PARAESTHESIA [None]
  - RHEUMATOID ARTHRITIS [None]
  - GESTATIONAL DIABETES [None]
  - INJECTION SITE PAIN [None]
  - UMBILICAL CORD ABNORMALITY [None]
